FAERS Safety Report 15328731 (Version 1)
Quarter: 2018Q3

REPORT INFORMATION
  Report Type: Spontaneous
  Country: ES (occurrence: ES)
  Receive Date: 20180829
  Receipt Date: 20180829
  Transmission Date: 20181010
  Serious: Yes (Life-Threatening, Hospitalization)
  Sender: FDA-Public Use
  Company Number: ES-TEVA-2018-ES-949152

PATIENT
  Age: 76 Year
  Sex: Female
  Weight: 76 kg

DRUGS (7)
  1. FUROSEMIDA (1615A) [Concomitant]
     Active Substance: FUROSEMIDE
     Indication: OEDEMA PERIPHERAL
     Dosage: 40 MILLIGRAM DAILY;
     Route: 048
     Dates: start: 20120530, end: 20180730
  2. ALOPURINOL (318A) [Suspect]
     Active Substance: ALLOPURINOL
     Route: 048
     Dates: start: 20180606, end: 20180727
  3. INVOKANA 100 MG COMPRIMIDOS RECUBIERTOS CON PELICULA 30 COMPRIMIDOS [Concomitant]
     Indication: TYPE 2 DIABETES MELLITUS
     Dosage: 200 MILLIGRAM DAILY;
     Route: 048
     Dates: start: 20180606, end: 20180714
  4. LEVOTIROXINA (1842A) [Concomitant]
     Dosage: 88 MICROGRAM DAILY;
     Route: 048
  5. FEBUXOSTAT (8216A) [Concomitant]
     Dosage: 80 MILLIGRAM DAILY;
     Route: 048
     Dates: start: 2016, end: 20180606
  6. OMEPRAZOL (2141A) [Concomitant]
     Active Substance: OMEPRAZOLE
     Dosage: 20 MILLIGRAM DAILY;
     Route: 048
  7. LANTUS 100 UNIDADES/ML SOLUCION INYECTABLE EN UN CARTUCHO [Concomitant]
     Route: 058

REACTIONS (2)
  - Tubulointerstitial nephritis [Recovered/Resolved]
  - Drug reaction with eosinophilia and systemic symptoms [Recovered/Resolved]

NARRATIVE: CASE EVENT DATE: 201806
